FAERS Safety Report 7841887-X (Version None)
Quarter: 2011Q4

REPORT INFORMATION
  Report Type: 
  Country: None (occurrence: None)
  Receive Date: 20111025
  Receipt Date: 20111019
  Transmission Date: 20120403
  Serious: Yes (Hospitalization)
  Sender: FDA-Public Use
  Company Number: PHHY2011JP86462

PATIENT
  Sex: Female
  Weight: 86 kg

DRUGS (5)
  1. CANDESARTAN CILEXETIL [Concomitant]
     Indication: HYPERTENSION
     Dosage: 8 MG
     Route: 048
     Dates: start: 20040414, end: 20071030
  2. CALBLOCK [Concomitant]
     Indication: HYPERTENSION
     Dosage: 16 MG
     Route: 048
     Dates: start: 20071226, end: 20090318
  3. LIPITOR [Concomitant]
     Dosage: 10 MG
     Route: 048
     Dates: start: 20040915, end: 20090318
  4. ADALAT [Concomitant]
     Indication: HYPERTENSION
     Dosage: 20 MG
     Route: 048
     Dates: start: 20040414, end: 20071225
  5. VALSARTAN [Suspect]
     Indication: HYPERTENSION
     Dosage: 160 MG, DAILY
     Route: 048
     Dates: start: 20071030, end: 20090318

REACTIONS (1)
  - BREAST CANCER [None]
